FAERS Safety Report 20781336 (Version 2)
Quarter: 2022Q2

REPORT INFORMATION
  Report Type: Spontaneous
  Country: US (occurrence: US)
  Receive Date: 20220504
  Receipt Date: 20220515
  Transmission Date: 20220721
  Serious: Yes (Other)
  Sender: FDA-Public Use
  Company Number: US-LUPIN PHARMACEUTICALS INC.-2022-06291

PATIENT

DRUGS (3)
  1. METHERGINE [Suspect]
     Active Substance: METHYLERGONOVINE MALEATE
     Indication: Product used for unknown indication
     Dosage: UNK UNK, SINGLE
     Route: 042
     Dates: start: 20220317
  2. ONDANSETRON [Suspect]
     Active Substance: ONDANSETRON
     Indication: Nausea
     Dosage: UNK, PRN
     Route: 065
  3. VITAMINS [Concomitant]
     Active Substance: VITAMINS
     Indication: Supplementation therapy
     Dosage: UNK
     Route: 065

REACTIONS (5)
  - Uterine hypertonus [Unknown]
  - Exposure during pregnancy [Unknown]
  - Wrong product administered [Unknown]
  - Accidental exposure to product [Unknown]
  - Hypotension [Unknown]

NARRATIVE: CASE EVENT DATE: 20220317
